FAERS Safety Report 4891622-2 (Version None)
Quarter: 2005Q4

REPORT INFORMATION
  Report Type: 
  Country: None (occurrence: None)
  Receive Date: 20051220
  Receipt Date: 20050919
  Transmission Date: 20060501
  Serious: Yes (Other)
  Sender: FDA-Public Use
  Company Number: 418424

PATIENT

DRUGS (1)
  1. BONIVA [Suspect]

REACTIONS (2)
  - DIARRHOEA [None]
  - MUSCLE SPASMS [None]
